FAERS Safety Report 8271770-X (Version None)
Quarter: 2012Q1

REPORT INFORMATION
  Report Type: 
  Country: None (occurrence: None)
  Receive Date: 20120312
  Receipt Date: 20111201
  Transmission Date: 20120608
  Serious: No
  Sender: FDA-Public Use
  Company Number: 2011SP056667

PATIENT
  Age: 52 Year
  Sex: Male

DRUGS (8)
  1. INSULIN [Concomitant]
  2. ZANTAC [Concomitant]
  3. SAPHRIS [Suspect]
     Indication: SCHIZOAFFECTIVE DISORDER
     Dosage: 10 MG; BID; SL
     Route: 060
     Dates: start: 20111001
  4. DEPAKOTE [Concomitant]
  5. CALCITRIOL [Concomitant]
  6. COGENTIN [Concomitant]
  7. ASPIRIN [Concomitant]
  8. CLONIDINE [Concomitant]

REACTIONS (4)
  - SEXUALLY INAPPROPRIATE BEHAVIOUR [None]
  - ANTICONVULSANT DRUG LEVEL DECREASED [None]
  - PSYCHOTIC DISORDER [None]
  - AGGRESSION [None]
